FAERS Safety Report 21848006 (Version 1)
Quarter: 2023Q1

REPORT INFORMATION
  Report Type: Spontaneous
  Country: US (occurrence: US)
  Receive Date: 20230111
  Receipt Date: 20230111
  Transmission Date: 20230418
  Serious: No
  Sender: FDA-Public Use
  Company Number: US-BIOVITRUM-2023US00569

PATIENT
  Sex: Male
  Weight: 9 kg

DRUGS (9)
  1. SYNAGIS [Suspect]
     Active Substance: PALIVIZUMAB
     Indication: Congenital diaphragmatic hernia
     Dates: start: 202209
  2. DIURIL [Concomitant]
     Active Substance: CHLOROTHIAZIDE
     Dosage: 250 MG/5ML ORAL SUSP
  3. GABAPENTIN [Concomitant]
     Active Substance: GABAPENTIN
     Dosage: 250 MG/5ML SOLUTION,
  4. LASIX [Concomitant]
     Active Substance: FUROSEMIDE
     Dosage: 20 MG TABLET
  5. SODIUM CHLORIDE [Concomitant]
     Active Substance: SODIUM CHLORIDE
     Dosage: 5 % DROPS
  6. ASPIRIN [Concomitant]
     Active Substance: ASPIRIN
     Dosage: 81 MG TAB CHEW
  7. PREVACID [Concomitant]
     Active Substance: LANSOPRAZOLE
     Dosage: 15 MG TAB RAP DR
  8. VITAMIN D3 [Concomitant]
     Active Substance: CHOLECALCIFEROL
     Dosage: 10(400)/ML DROPS
  9. SYNAGIS [Suspect]
     Active Substance: PALIVIZUMAB
     Indication: Pulmonary malformation

REACTIONS (1)
  - Cough [Unknown]
